FAERS Safety Report 4720893-8 (Version None)
Quarter: 2005Q3

REPORT INFORMATION
  Report Type: 
  Country: None (occurrence: None)
  Receive Date: 20050720
  Receipt Date: 20050707
  Transmission Date: 20060218
  Serious: Yes (Other)
  Sender: FDA-Public Use
  Company Number: HQWYE153812JUL05

PATIENT
  Age: 72 Year
  Sex: Female

DRUGS (5)
  1. PANTOPRAZOLE SODIUM [Suspect]
     Dosage: 40 MG 1X PER 1 DAY
  2. THEOPHYLLINE [Concomitant]
  3. HYZAAR [Concomitant]
  4. SINTROM [Concomitant]
  5. DIGOXIN [Concomitant]

REACTIONS (1)
  - CYTOLYTIC HEPATITIS [None]
